FAERS Safety Report 9476988 (Version 1)
Quarter: 2013Q3

REPORT INFORMATION
  Report Type: Spontaneous
  Country: US (occurrence: US)
  Receive Date: 20130826
  Receipt Date: 20130826
  Transmission Date: 20140515
  Serious: No
  Sender: FDA-Public Use
  Company Number: US-009507513-1308USA010894

PATIENT
  Age: 6 Year
  Sex: Female

DRUGS (1)
  1. CLARITIN ORAL SOLUTION [Suspect]
     Indication: PRURITUS
     Dosage: UNK, BID
     Route: 048
     Dates: start: 20130813, end: 20130813

REACTIONS (3)
  - Circumstance or information capable of leading to medication error [Unknown]
  - Drug ineffective for unapproved indication [Unknown]
  - Off label use [Unknown]
